FAERS Safety Report 18346851 (Version 4)
Quarter: 2020Q4

REPORT INFORMATION
  Report Type: Spontaneous
  Country: US (occurrence: US)
  Receive Date: 20201005
  Receipt Date: 20201211
  Transmission Date: 20210114
  Serious: Yes (Other)
  Sender: FDA-Public Use
  Company Number: US-SA-2020SA268085

PATIENT

DRUGS (3)
  1. LANTUS [Suspect]
     Active Substance: INSULIN GLARGINE
     Indication: TYPE 2 DIABETES MELLITUS
     Dosage: 15 IU, QD (NIGHT)
     Route: 065
     Dates: start: 2014
  2. LANTUS [Suspect]
     Active Substance: INSULIN GLARGINE
     Dosage: 20 OR 22 IU, QD (NIGHT)
     Route: 065
  3. NOVOLOG [Concomitant]
     Active Substance: INSULIN ASPART
     Dosage: UNKNOWN

REACTIONS (4)
  - Wrong technique in device usage process [Unknown]
  - Diabetes mellitus inadequate control [Recovering/Resolving]
  - Cough [Unknown]
  - Product quality issue [Recovering/Resolving]

NARRATIVE: CASE EVENT DATE: 2020
